FAERS Safety Report 6623197-1 (Version None)
Quarter: 2010Q1

REPORT INFORMATION
  Report Type: 
  Country: None (occurrence: None)
  Receive Date: 20100310
  Receipt Date: 20091221
  Transmission Date: 20100710
  Serious: No
  Sender: FDA-Public Use
  Company Number: US-BIOGENIDEC-2009BI041539

PATIENT
  Age: 51 Year
  Sex: Female

DRUGS (2)
  1. AVONEX [Suspect]
     Indication: MULTIPLE SCLEROSIS
     Route: 030
     Dates: start: 20010901
  2. AVONEX [Suspect]
     Route: 030

REACTIONS (5)
  - APHASIA [None]
  - CLOSTRIDIAL INFECTION [None]
  - MEMORY IMPAIRMENT [None]
  - THYROID DISORDER [None]
  - UPPER RESPIRATORY TRACT INFECTION [None]
